FAERS Safety Report 5838633-8 (Version None)
Quarter: 2008Q3

REPORT INFORMATION
  Report Type: 
  Country: None (occurrence: None)
  Receive Date: 20080808
  Receipt Date: 20080701
  Transmission Date: 20090109
  Serious: No
  Sender: FDA-Public Use
  Company Number: A0735570A

PATIENT
  Age: 25 Year
  Sex: Female

DRUGS (2)
  1. ALTABAX [Suspect]
     Route: 061
  2. ANTIBIOTIC [Concomitant]
     Route: 048

REACTIONS (1)
  - APPLICATION SITE IRRITATION [None]
